FAERS Safety Report 12635245 (Version 1)
Quarter: 2016Q3

REPORT INFORMATION
  Report Type: Spontaneous
  Country: KR (occurrence: KR)
  Receive Date: 20160808
  Receipt Date: 20160808
  Transmission Date: 20161109
  Serious: Yes (Other)
  Sender: FDA-Public Use
  Company Number: KR-ELI_LILLY_AND_COMPANY-KR201607013640

PATIENT
  Sex: Female

DRUGS (1)
  1. FORSTEO [Suspect]
     Active Substance: TERIPARATIDE
     Indication: PRODUCT USED FOR UNKNOWN INDICATION
     Dosage: UNK UNK, UNKNOWN
     Route: 065
     Dates: start: 201606

REACTIONS (5)
  - Corneal oedema [Unknown]
  - Peripheral swelling [Unknown]
  - Vision blurred [Unknown]
  - Eye swelling [Unknown]
  - Generalised oedema [Unknown]

NARRATIVE: CASE EVENT DATE: 201606
